FAERS Safety Report 17848276 (Version 1)
Quarter: 2020Q2

REPORT INFORMATION
  Report Type: Other
  Country: CA (occurrence: CA)
  Receive Date: 20200602
  Receipt Date: 20200602
  Transmission Date: 20200714
  Serious: Yes (Other)
  Sender: FDA-Public Use
  Company Number: CA-APOTEX-2020AP011247

PATIENT
  Age: 77 Year
  Sex: Female

DRUGS (2)
  1. PROLIA [Suspect]
     Active Substance: DENOSUMAB
     Indication: OSTEOPOROSIS
     Dosage: 60.0 ?G, 1 EVERY 6 MONTHS
     Route: 058
  2. AMOXI CLAV [Suspect]
     Active Substance: AMOXICILLIN\CLAVULANATE POTASSIUM
     Indication: PRODUCT USED FOR UNKNOWN INDICATION
     Route: 065

REACTIONS (8)
  - Oral pain [Unknown]
  - Osteomyelitis [Unknown]
  - Pain in jaw [Unknown]
  - Abdominal pain [Unknown]
  - Computerised tomogram abnormal [Unknown]
  - Bone disorder [Unknown]
  - Face and mouth X-ray abnormal [Unknown]
  - Osteonecrosis of jaw [Unknown]
